FAERS Safety Report 15975158 (Version 2)
Quarter: 2019Q1

REPORT INFORMATION
  Report Type: Report from Study
  Country: US (occurrence: US)
  Receive Date: 20190218
  Receipt Date: 20190318
  Transmission Date: 20190418
  Serious: Yes (Death, Other)
  Sender: FDA-Public Use
  Company Number: US-ROCHE-2261752

PATIENT
  Age: 8 Month
  Sex: Male

DRUGS (9)
  1. FLUDARABINE [Concomitant]
     Active Substance: FLUDARABINE PHOSPHATE
  2. MYCOPHENOLATE MOFETIL. [Suspect]
     Active Substance: MYCOPHENOLATE MOFETIL
     Indication: IMMUNOSUPPRESSION
     Route: 065
  3. TACROLIMUS. [Suspect]
     Active Substance: TACROLIMUS
     Indication: IMMUNOSUPPRESSION
     Route: 065
  4. RITUXIMAB. [Suspect]
     Active Substance: RITUXIMAB
     Indication: VIRAEMIA
     Route: 065
  5. HYDROXYUREA. [Concomitant]
     Active Substance: HYDROXYUREA
     Route: 065
  6. ALEMTUZUMAB [Concomitant]
     Active Substance: ALEMTUZUMAB
     Route: 065
  7. THIOTEPA. [Concomitant]
     Active Substance: THIOTEPA
     Route: 065
  8. RIBAVIRIN. [Suspect]
     Active Substance: RIBAVIRIN
     Indication: INFECTION
     Dosage: 15-60 MG/KG/DAY
     Route: 048
  9. MELPHALAN. [Concomitant]
     Active Substance: MELPHALAN
     Route: 065

REACTIONS (6)
  - Escherichia infection [Unknown]
  - Serratia sepsis [Unknown]
  - Haemolytic anaemia [Unknown]
  - Enterococcal infection [Unknown]
  - Parainfluenzae virus infection [Unknown]
  - Cytomegalovirus infection [Fatal]
